FAERS Safety Report 25926751 (Version 1)
Quarter: 2025Q4

REPORT INFORMATION
  Report Type: Spontaneous
  Country: US (occurrence: None)
  Receive Date: 20251014
  Receipt Date: 20251014
  Transmission Date: 20260117
  Serious: No
  Sender: FDA-CTU
  Company Number: None

PATIENT
  Age: 23 Year
  Sex: Female
  Weight: 56.7 kg

DRUGS (2)
  1. DEVICE [Suspect]
     Active Substance: DEVICE
  2. BOTOX [Suspect]
     Active Substance: ONABOTULINUMTOXINA

REACTIONS (6)
  - Product advertising issue [None]
  - Product use in unapproved therapeutic environment [None]
  - Victim of crime [None]
  - Lip disorder [None]
  - Injection site scar [None]
  - Wrong technique in product usage process [None]

NARRATIVE: CASE EVENT DATE: 20250509
